FAERS Safety Report 9990834 (Version 1)
Quarter: 2014Q1

REPORT INFORMATION
  Report Type: Spontaneous
  Country: US (occurrence: None)
  Receive Date: 20140307
  Receipt Date: 20140307
  Transmission Date: 20141002
  Serious: No
  Sender: FDA-Public Use
  Company Number: None

PATIENT
  Sex: Female
  Weight: 59.42 kg

DRUGS (1)
  1. DULOXETINE DELAYED-RELEASE [Suspect]
     Indication: OSTEOARTHRITIS
     Route: 048
     Dates: start: 20140103

REACTIONS (2)
  - Bone pain [None]
  - Condition aggravated [None]
